FAERS Safety Report 4864560-9 (Version None)
Quarter: 2005Q4

REPORT INFORMATION
  Report Type: 
  Country: None (occurrence: None)
  Receive Date: 20051222
  Receipt Date: 20050815
  Transmission Date: 20060501
  Serious: Yes (Other)
  Sender: FDA-Public Use
  Company Number: 200516336US

PATIENT
  Age: 51 Year
  Sex: Female

DRUGS (8)
  1. LANTUS [Suspect]
     Indication: DIABETES MELLITUS NON-INSULIN-DEPENDENT
     Dosage: DOSE UNIT: UNITS
  2. OPTICLIK (INSULIN INJECTION PEN) [Suspect]
     Dosage: DOSE: UNK
     Dates: start: 20050811
  3. METFORMIN [Concomitant]
     Dosage: DOSE: UNK
  4. HYDROCHLOROTHIAZIDE [Concomitant]
     Dosage: DOSE: UNK
  5. LEVOTHROID [Concomitant]
     Dosage: DOSE: UNK
  6. GLIPIZIDE [Concomitant]
     Dosage: DOSE: UNK
  7. LIPITOR [Concomitant]
     Dosage: DOSE: UNK
  8. ENALAPRIL [Concomitant]
     Dosage: DOSE: UNK

REACTIONS (2)
  - BLOOD GLUCOSE INCREASED [None]
  - NEPHROLITHIASIS [None]
